FAERS Safety Report 5190876-5 (Version None)
Quarter: 2006Q4

REPORT INFORMATION
  Report Type: 
  Country: None (occurrence: None)
  Receive Date: 20061222
  Receipt Date: 20060615
  Transmission Date: 20070319
  Serious: Yes (Hospitalization)
  Sender: FDA-Public Use
  Company Number: US-ROCHE-451932

PATIENT
  Age: 64 Year
  Sex: Female
  Weight: 73 kg

DRUGS (4)
  1. CAPECITABINE [Suspect]
     Indication: RECTAL CANCER
     Dosage: GIVEN 5 DAYS PER WEEK EVERY 12 HOURS DURING RADIOTHERAPY (RT)STARTING THE EVENING BEFORE DAY 1 OF R+
     Route: 048
     Dates: start: 20060410, end: 20060508
  2. CAPECITABINE [Suspect]
     Dosage: REPORTED AS DOSE REDUCTION OF 25%.  GIVEN EVERY 12 HOURS.
     Route: 048
     Dates: start: 20060519
  3. OXALIPLATIN [Suspect]
     Indication: RECTAL CANCER
     Dosage: DOSE ALSO REPORTED AS 50MG/M2.  ADMINISTERED OVER 2 HOURS ON DAYS 1, 8, 15, 22 AND 29.  LAST DOSE P+
     Route: 065
     Dates: start: 20060411, end: 20060502
  4. OXALIPLATIN [Suspect]
     Dosage: DOSE REDUCTION OF 25% FOR THE FIFTH INFUSION.
     Route: 065
     Dates: start: 20060524

REACTIONS (12)
  - ASTHENIA [None]
  - DEHYDRATION [None]
  - DIARRHOEA [None]
  - DRY MOUTH [None]
  - ENTEROCOLITIS INFECTIOUS [None]
  - HYPOKALAEMIA [None]
  - HYPONATRAEMIA [None]
  - LETHARGY [None]
  - MALAISE [None]
  - NAUSEA [None]
  - URINARY TRACT INFECTION [None]
  - VOMITING [None]
